FAERS Safety Report 16436932 (Version 6)
Quarter: 2019Q4

REPORT INFORMATION
  Report Type: Report from Study
  Country: US (occurrence: US)
  Receive Date: 20190614
  Receipt Date: 20191126
  Transmission Date: 20200122
  Serious: Yes (Hospitalization)
  Sender: FDA-Public Use
  Company Number: US-ACTELION-A-US2019-191674

PATIENT
  Sex: Female
  Weight: 70.3 kg

DRUGS (5)
  1. VELETRI [Suspect]
     Active Substance: EPOPROSTENOL
     Dosage: 23 UNK
     Route: 042
  2. LETAIRIS [Concomitant]
     Active Substance: AMBRISENTAN
  3. VELETRI [Suspect]
     Active Substance: EPOPROSTENOL
     Indication: PULMONARY ARTERIAL HYPERTENSION
     Dosage: 20 NG/KG, PER MIN
     Route: 042
  4. VELETRI [Suspect]
     Active Substance: EPOPROSTENOL
     Dosage: 21.5 NG/KG, PER MIN
     Route: 042
  5. ADEMPAS [Concomitant]
     Active Substance: RIOCIGUAT

REACTIONS (12)
  - Pain in jaw [Not Recovered/Not Resolved]
  - Nausea [Unknown]
  - Arthralgia [Not Recovered/Not Resolved]
  - Abdominal discomfort [Unknown]
  - Vomiting [Unknown]
  - Pneumonia [Unknown]
  - Diarrhoea [Unknown]
  - Fatigue [Unknown]
  - Dyspepsia [Not Recovered/Not Resolved]
  - Bone pain [Unknown]
  - Dyspnoea exertional [Unknown]
  - Headache [Unknown]
